FAERS Safety Report 7236917-2 (Version None)
Quarter: 2011Q1

REPORT INFORMATION
  Report Type: 
  Country: None (occurrence: None)
  Receive Date: 20110121
  Receipt Date: 20110113
  Transmission Date: 20110831
  Serious: Yes (Other)
  Sender: FDA-Public Use
  Company Number: GB-AMGEN-GBRSP2011002837

PATIENT

DRUGS (3)
  1. METHOTREXATE SODIUM [Concomitant]
  2. PREDNISOLONE [Concomitant]
  3. ENBREL [Suspect]
     Indication: RHEUMATOID ARTHRITIS
     Dosage: 200 MG, UNK
     Route: 042
     Dates: start: 20080101, end: 20101101

REACTIONS (2)
  - INCORRECT ROUTE OF DRUG ADMINISTRATION [None]
  - NON-HODGKIN'S LYMPHOMA STAGE II [None]
